FAERS Safety Report 9054630 (Version 1)
Quarter: 2013Q1

REPORT INFORMATION
  Report Type: Spontaneous
  Country: US (occurrence: US)
  Receive Date: 20130208
  Receipt Date: 20130208
  Transmission Date: 20140127
  Serious: No
  Sender: FDA-Public Use
  Company Number: US-BAYER-2013-010052

PATIENT
  Age: 55 Year
  Sex: Female

DRUGS (2)
  1. FINACEA [Suspect]
     Indication: ROSACEA
     Dosage: UNK UNK, BID
     Route: 061
     Dates: start: 20130104, end: 20130106
  2. FINACEA [Suspect]
     Indication: ACNE

REACTIONS (2)
  - Rash macular [Not Recovered/Not Resolved]
  - Burning sensation [Not Recovered/Not Resolved]
